FAERS Safety Report 8444830-8 (Version None)
Quarter: 2012Q2

REPORT INFORMATION
  Report Type: 
  Country: None (occurrence: None)
  Receive Date: 20120618
  Receipt Date: 20120611
  Transmission Date: 20120825
  Serious: Yes (Other)
  Sender: FDA-Public Use
  Company Number: PHFR2011GB006415

PATIENT
  Sex: Male

DRUGS (4)
  1. PROPRANOLOL [Concomitant]
     Indication: TACHYCARDIA
     Dosage: 40 MG, BID
  2. PIRENZEPINE [Concomitant]
     Indication: SALIVARY HYPERSECRETION
     Dosage: 150 MG, UNK
  3. CLOZARIL [Suspect]
     Indication: SCHIZOPHRENIA
     Dosage: 400 MG, UNK
     Route: 048
     Dates: start: 20100211
  4. CETIRIZINE HCL [Concomitant]
     Indication: SEASONAL ALLERGY
     Dosage: 10 MG, UNK
     Route: 048

REACTIONS (3)
  - DIFFERENTIAL WHITE BLOOD CELL COUNT ABNORMAL [None]
  - NEUTROPHIL COUNT INCREASED [None]
  - WHITE BLOOD CELL COUNT INCREASED [None]
